FAERS Safety Report 12535829 (Version 1)
Quarter: 2016Q3

REPORT INFORMATION
  Report Type: Spontaneous
  Country: US (occurrence: None)
  Receive Date: 20160706
  Receipt Date: 20160706
  Transmission Date: 20161109
  Serious: Yes (Other)
  Sender: FDA-Public Use
  Company Number: None

PATIENT
  Age: 65 Year
  Sex: Male
  Weight: 61.24 kg

DRUGS (3)
  1. INVOKANA [Suspect]
     Active Substance: CANAGLIFLOZIN
     Indication: DIABETES MELLITUS
     Route: 048
     Dates: start: 20160530, end: 20160530
  2. GLUCOSAMINE [Concomitant]
     Active Substance: GLUCOSAMINE
  3. METFORMIN [Concomitant]
     Active Substance: METFORMIN HYDROCHLORIDE

REACTIONS (9)
  - Back pain [None]
  - Dizziness [None]
  - Hyperhidrosis [None]
  - Headache [None]
  - Discomfort [None]
  - Hypoaesthesia oral [None]
  - Asthenopia [None]
  - Feeling abnormal [None]
  - Hypoaesthesia [None]

NARRATIVE: CASE EVENT DATE: 20160530
